FAERS Safety Report 25263327 (Version 2)
Quarter: 2025Q2

REPORT INFORMATION
  Report Type: Spontaneous
  Country: FR (occurrence: FR)
  Receive Date: 20250502
  Receipt Date: 20250527
  Transmission Date: 20250716
  Serious: Yes (Hospitalization, Other)
  Sender: AUROBINDO
  Company Number: FR-AUROBINDO-AUR-APL-2025-018747

PATIENT
  Age: 82 Year
  Sex: Male

DRUGS (6)
  1. LEVOFLOXACIN [Suspect]
     Active Substance: LEVOFLOXACIN
     Indication: Cough
     Dosage: 1 GRAM, TWO TIMES A DAY(ONE TABLET AT THE MORNING AND THE EVENING)
     Route: 048
     Dates: start: 20250320, end: 20250329
  2. PREDNISOLONE [Suspect]
     Active Substance: PREDNISOLONE
     Indication: Cough
     Route: 065
     Dates: start: 202503
  3. ELIQUIS [Concomitant]
     Active Substance: APIXABAN
     Indication: Product used for unknown indication
     Dosage: UNK, TWO TIMES A DAY
     Route: 065
  4. FUROSEMIDE [Concomitant]
     Active Substance: FUROSEMIDE
     Indication: Product used for unknown indication
     Route: 065
  5. EPLERENONE [Concomitant]
     Active Substance: EPLERENONE
     Indication: Product used for unknown indication
     Route: 065
  6. AMOXICILLIN [Concomitant]
     Active Substance: AMOXICILLIN
     Indication: Endocarditis
     Route: 065

REACTIONS (11)
  - Paranoia [Recovering/Resolving]
  - Muscle atrophy [Not Recovered/Not Resolved]
  - Agitation [Recovering/Resolving]
  - Pain [Recovering/Resolving]
  - Joint swelling [Not Recovered/Not Resolved]
  - Neuropathy peripheral [Recovered/Resolved]
  - Depression [Recovering/Resolving]
  - Food refusal [Recovered/Resolved]
  - Personality change [Recovering/Resolving]
  - Aggression [Recovering/Resolving]
  - Off label use [Unknown]

NARRATIVE: CASE EVENT DATE: 20250320
